FAERS Safety Report 8956787 (Version 2)
Quarter: 2014Q2

REPORT INFORMATION
  Report Type: Spontaneous
  Country: FR (occurrence: FR)
  Receive Date: 20121211
  Receipt Date: 20131018
  Transmission Date: 20141212
  Serious: Yes (Other)
  Sender: FDA-Public Use
  Company Number: FR-PFIZER INC-2012309870

PATIENT
  Age: 60 Year
  Sex: Male

DRUGS (8)
  1. ATENOLOL [Suspect]
     Dosage: 50 MG, 2X/DAY
     Route: 048
     Dates: start: 20120927, end: 20121010
  2. PERINDOPRIL [Suspect]
     Dosage: UNK
     Route: 048
     Dates: start: 20120927, end: 20121010
  3. KARDEGIC [Concomitant]
     Dosage: 75 MG DAILY
     Route: 048
     Dates: start: 20120927
  4. INEXIUM [Concomitant]
     Dosage: UNK
     Route: 065
  5. NICOPATCH [Concomitant]
     Dosage: UNK
     Route: 065
     Dates: start: 20120927
  6. TAHOR [Concomitant]
     Dosage: UNK
     Route: 065
  7. LOVENOX [Concomitant]
     Dosage: UNK
     Route: 048
     Dates: start: 20120927, end: 20121001
  8. PRASUGREL [Concomitant]
     Dosage: UNK
     Route: 065
     Dates: start: 20120927, end: 20121002

REACTIONS (1)
  - Toxic skin eruption [Recovered/Resolved]
